FAERS Safety Report 8244517-0 (Version None)
Quarter: 2012Q1

REPORT INFORMATION
  Report Type: 
  Country: None (occurrence: None)
  Receive Date: 20120329
  Receipt Date: 20120327
  Transmission Date: 20120608
  Serious: Yes (Other)
  Sender: FDA-Public Use
  Company Number: DE-JNJFOC-20120300065

PATIENT
  Sex: Female

DRUGS (2)
  1. MINOXIDIL [Suspect]
     Indication: ALOPECIA
     Dosage: DOSE AND FREQUENCY WERE UNSPECIFIED, FOR 4-5 MONTHS
     Route: 061
     Dates: start: 20110101, end: 20110101
  2. MINOXIDIL [Suspect]
     Route: 061

REACTIONS (1)
  - PSORIASIS [None]
